FAERS Safety Report 6375511-2 (Version None)
Quarter: 2009Q3

REPORT INFORMATION
  Report Type: 
  Country: None (occurrence: None)
  Receive Date: 20090924
  Receipt Date: 20090914
  Transmission Date: 20100115
  Serious: Yes (Life-Threatening, Hospitalization, Other)
  Sender: FDA-Public Use
  Company Number: DE-ELI_LILLY_AND_COMPANY-DE200909003162

PATIENT
  Age: 27 Year
  Sex: Male

DRUGS (3)
  1. ZYPREXA [Suspect]
     Indication: SCHIZOPHRENIA, DISORGANISED TYPE
     Dosage: 650 MG, DAILY (1/D)
     Route: 048
     Dates: start: 20081201
  2. TRIMIPRAMINE MALEATE [Concomitant]
     Indication: SCHIZOPHRENIA, DISORGANISED TYPE
     Dosage: 150 MG, DAILY (1/D)
     Route: 048
     Dates: start: 20081201
  3. TRUXAL [Concomitant]
     Indication: SCHIZOPHRENIA, DISORGANISED TYPE
     Dosage: 35 MG, DAILY (1/D)
     Route: 048
     Dates: start: 20081201

REACTIONS (2)
  - ACUTE MYOCARDIAL INFARCTION [None]
  - OVERDOSE [None]
